FAERS Safety Report 10818789 (Version 1)
Quarter: 2015Q1

REPORT INFORMATION
  Report Type: Report from Study
  Country: US (occurrence: US)
  Receive Date: 20150218
  Receipt Date: 20150218
  Transmission Date: 20150721
  Serious: No
  Sender: FDA-Public Use
  Company Number: US-ABBVIE-14K-163-1294516-00

PATIENT
  Age: 44 Year
  Sex: Male

DRUGS (1)
  1. HUMIRA [Suspect]
     Active Substance: ADALIMUMAB
     Indication: PSORIASIS
     Route: 065
     Dates: start: 201312

REACTIONS (9)
  - Drug dose omission [Not Recovered/Not Resolved]
  - Cough [Not Recovered/Not Resolved]
  - Respiratory tract congestion [Not Recovered/Not Resolved]
  - Oropharyngeal pain [Recovered/Resolved]
  - Respiratory tract congestion [Recovered/Resolved]
  - Cough [Recovered/Resolved]
  - Pyrexia [Unknown]
  - Oropharyngeal pain [Not Recovered/Not Resolved]
  - Tonsillitis [Not Recovered/Not Resolved]

NARRATIVE: CASE EVENT DATE: 2014
